FAERS Safety Report 11371700 (Version 1)
Quarter: 2015Q3

REPORT INFORMATION
  Report Type: Spontaneous
  Country: US (occurrence: US)
  Receive Date: 20150812
  Receipt Date: 20150812
  Transmission Date: 20151125
  Serious: Yes (Other)
  Sender: FDA-Public Use
  Company Number: US-BAYER-2015-393532

PATIENT
  Age: 39 Year
  Sex: Female

DRUGS (1)
  1. MIRENA [Suspect]
     Active Substance: LEVONORGESTREL
     Indication: CONTRACEPTION
     Dosage: UNK
     Route: 015
     Dates: start: 20121213

REACTIONS (6)
  - Menstruation delayed [None]
  - Post abortion haemorrhage [None]
  - Post abortion haemorrhage [None]
  - Pregnancy with contraceptive device [None]
  - Drug ineffective [None]
  - Device dislocation [None]

NARRATIVE: CASE EVENT DATE: 201506
